FAERS Safety Report 21773955 (Version 1)
Quarter: 2022Q4

REPORT INFORMATION
  Report Type: Report from Study
  Country: US (occurrence: US)
  Receive Date: 20221223
  Receipt Date: 20221223
  Transmission Date: 20230113
  Serious: Yes (Other)
  Sender: FDA-Public Use
  Company Number: US-BAUSCH-BL-2022-027647

PATIENT
  Age: 71 Year
  Sex: Male

DRUGS (2)
  1. TRULANCE [Suspect]
     Active Substance: PLECANATIDE
     Indication: Product used for unknown indication
     Route: 065
  2. TRULANCE [Suspect]
     Active Substance: PLECANATIDE
     Dosage: DOSE REDUCED TO EVERY OTHER DAY.
     Route: 065

REACTIONS (2)
  - Multiple sclerosis [Unknown]
  - Malaise [Unknown]
